FAERS Safety Report 5247430-6 (Version None)
Quarter: 2007Q1

REPORT INFORMATION
  Report Type: 
  Country: None (occurrence: None)
  Receive Date: 20070223
  Receipt Date: 20070223
  Transmission Date: 20070707
  Serious: No
  Sender: FDA-Public Use
  Company Number: None

PATIENT
  Age: 69 Year
  Sex: Female
  Weight: 71 kg

DRUGS (8)
  1. CYMBALTA [Suspect]
     Indication: MAJOR DEPRESSION
     Dosage: 60MG  ONE DAILY  PO
     Route: 048
     Dates: start: 20070131, end: 20070207
  2. GEODON [Concomitant]
  3. PLAVIX [Concomitant]
  4. AMILORIDE HYDROCHLORIDE [Concomitant]
  5. NEXIUM [Concomitant]
  6. DILTIAZEM [Concomitant]
  7. PHENYTOIN [Concomitant]
  8. DOCUSATE [Concomitant]

REACTIONS (2)
  - DECREASED APPETITE [None]
  - ORAL INTAKE REDUCED [None]
